FAERS Safety Report 20109307 (Version 1)
Quarter: 2021Q4

REPORT INFORMATION
  Report Type: Spontaneous
  Country: FR (occurrence: None)
  Receive Date: 20211124
  Receipt Date: 20211124
  Transmission Date: 20220303
  Serious: Yes (Hospitalization)
  Sender: FDA-Public Use
  Company Number: 2021A814607

PATIENT
  Age: 71 Year
  Sex: Female

DRUGS (1)
  1. TAGRISSO [Suspect]
     Active Substance: OSIMERTINIB
     Indication: Adenocarcinoma
     Dosage: 80.0MG UNKNOWN
     Route: 048
     Dates: start: 20210616, end: 20210724

REACTIONS (2)
  - Hepatic cytolysis [Recovering/Resolving]
  - Cholestasis [Recovering/Resolving]

NARRATIVE: CASE EVENT DATE: 20210724
